FAERS Safety Report 19141328 (Version 1)
Quarter: 2021Q2

REPORT INFORMATION
  Report Type: Spontaneous
  Country: US (occurrence: US)
  Receive Date: 20210415
  Receipt Date: 20210415
  Transmission Date: 20210717
  Serious: No
  Sender: FDA-Public Use
  Company Number: US-SA-2021SA115967

PATIENT
  Sex: Female

DRUGS (2)
  1. NANO [Concomitant]
     Dosage: 32 G
     Route: 065
  2. LANTUS SOLOSTAR [Suspect]
     Active Substance: INSULIN GLARGINE
     Dosage: 18 IU, QD
     Route: 065
     Dates: start: 2015

REACTIONS (1)
  - Eye operation [Unknown]
